FAERS Safety Report 6701171-4 (Version None)
Quarter: 2010Q2

REPORT INFORMATION
  Report Type: 
  Country: None (occurrence: None)
  Receive Date: 20100428
  Receipt Date: 20100428
  Transmission Date: 20101027
  Serious: Yes (Other)
  Sender: FDA-Public Use
  Company Number: None

PATIENT
  Age: 48 Year
  Sex: Male
  Weight: 78.4723 kg

DRUGS (3)
  1. ORECEA 40MG ORACEA [Suspect]
     Indication: FOLLICULITIS
     Dosage: 1 CAPSULE DAILY PO
     Route: 048
     Dates: start: 20091120, end: 20100320
  2. ORECEA 40MG ORACEA [Suspect]
     Indication: FOLLICULITIS
     Dosage: 1 CAPSULE DAILY PO
     Route: 048
     Dates: start: 20100419, end: 20100419
  3. ORACEA [Concomitant]

REACTIONS (3)
  - DRUG HYPERSENSITIVITY [None]
  - ERYTHEMA [None]
  - URTICARIA [None]
